FAERS Safety Report 25306613 (Version 1)
Quarter: 2025Q2

REPORT INFORMATION
  Report Type: Spontaneous
  Country: US (occurrence: None)
  Receive Date: 20250509
  Receipt Date: 20250509
  Transmission Date: 20250717
  Serious: Yes (Other)
  Sender: FDA-CTU
  Company Number: None

PATIENT
  Age: 81 Year
  Sex: Female

DRUGS (1)
  1. HUMIRA [Suspect]
     Active Substance: ADALIMUMAB
     Indication: Rheumatoid arthritis
     Dates: start: 20250227, end: 20250429

REACTIONS (4)
  - Muscle spasms [None]
  - Hypoaesthesia [None]
  - Breast mass [None]
  - Therapy cessation [None]

NARRATIVE: CASE EVENT DATE: 20250509
